FAERS Safety Report 12820435 (Version 1)
Quarter: 2016Q4

REPORT INFORMATION
  Report Type: Report from Study
  Country: US (occurrence: US)
  Receive Date: 20161006
  Receipt Date: 20161006
  Transmission Date: 20170207
  Serious: Yes (Other)
  Sender: FDA-Public Use
  Company Number: US-AMGEN-USASL2015131327

PATIENT
  Age: 65 Year
  Sex: Female

DRUGS (2)
  1. PROLIA [Suspect]
     Active Substance: DENOSUMAB
     Indication: OSTEOPOROSIS POSTMENOPAUSAL
     Dosage: 60 MG/ML, Q6MO
     Route: 065
     Dates: start: 20110105
  2. AMOXICILLIN. [Concomitant]
     Active Substance: AMOXICILLIN
     Dosage: UNK

REACTIONS (14)
  - Dental implantation [Unknown]
  - Gingival disorder [Unknown]
  - Endodontic procedure [Unknown]
  - Back pain [Unknown]
  - Exposed bone in jaw [Unknown]
  - Bone graft [Unknown]
  - Device failure [Unknown]
  - Swelling face [Unknown]
  - Tooth fracture [Unknown]
  - Procedural pain [Unknown]
  - Pyrexia [Unknown]
  - Toothache [Unknown]
  - Sensitivity of teeth [Unknown]
  - Post procedural discomfort [Unknown]

NARRATIVE: CASE EVENT DATE: 20140701
